FAERS Safety Report 8229483-6 (Version None)
Quarter: 2012Q1

REPORT INFORMATION
  Report Type: 
  Country: None (occurrence: None)
  Receive Date: 20120322
  Receipt Date: 20120316
  Transmission Date: 20120608
  Serious: Yes (Hospitalization)
  Sender: FDA-Public Use
  Company Number: US-GILEAD-2012-0051942

PATIENT
  Sex: Female

DRUGS (20)
  1. LEVOTHYROXINE SODIUM [Concomitant]
  2. FERROUS SULFATE TAB [Concomitant]
  3. LASIX [Concomitant]
  4. LETAIRIS [Suspect]
     Indication: PULMONARY HYPERTENSION
     Dosage: 5 MG, UNK
     Route: 048
     Dates: start: 20110919, end: 20120223
  5. ZOLOFT [Concomitant]
  6. METOPROLOL SUCCINATE [Concomitant]
  7. ENALAPRIL [Concomitant]
  8. NOVOLOG [Concomitant]
  9. HYDRALAZINE HCL [Concomitant]
  10. FISH OIL [Concomitant]
  11. LEVEMIR [Concomitant]
  12. CALCIUM CARBONATE [Concomitant]
  13. ZOCOR [Concomitant]
  14. OMEPRAZOLE [Concomitant]
  15. ASPIRIN [Concomitant]
  16. TYLENOL (CAPLET) [Concomitant]
  17. LORATADINE [Concomitant]
  18. FOSAMAX [Concomitant]
  19. QUININE SULFATE [Concomitant]
  20. ARANESP [Concomitant]

REACTIONS (1)
  - DYSPNOEA [None]
